FAERS Safety Report 7571493-6 (Version None)
Quarter: 2011Q2

REPORT INFORMATION
  Report Type: 
  Country: None (occurrence: None)
  Receive Date: 20110624
  Receipt Date: 20101001
  Transmission Date: 20111010
  Serious: Yes (Other)
  Sender: FDA-Public Use
  Company Number: IT-JNJFOC-20101000959

PATIENT
  Age: 56 Year
  Sex: Female

DRUGS (3)
  1. REMICADE [Suspect]
     Indication: PSORIATIC ARTHROPATHY
     Dosage: INFUSIONS 1-3
     Route: 042
  2. METHOTREXATE [Concomitant]
  3. REMICADE [Suspect]
     Dosage: 4TH INFUSION
     Route: 042
     Dates: start: 20100303, end: 20100303

REACTIONS (4)
  - PRESYNCOPE [None]
  - MYALGIA [None]
  - INFUSION RELATED REACTION [None]
  - FLUSHING [None]
